FAERS Safety Report 25932645 (Version 1)
Quarter: 2025Q4

REPORT INFORMATION
  Report Type: Report from Study
  Country: US (occurrence: US)
  Receive Date: 20251017
  Receipt Date: 20251017
  Transmission Date: 20260119
  Serious: Yes (Other)
  Sender: JAZZ
  Company Number: US-JAZZ PHARMACEUTICALS-2025-US-024041

PATIENT
  Age: 47 Year
  Sex: Female

DRUGS (2)
  1. XYWAV [Suspect]
     Active Substance: CALCIUM OXYBATE\MAGNESIUM OXYBATE\POTASSIUM OXYBATE\SODIUM OXYBATE
     Indication: Hypersomnia
     Dosage: 3.75 MILLIGRAM, QD
  2. XYWAV [Suspect]
     Active Substance: CALCIUM OXYBATE\MAGNESIUM OXYBATE\POTASSIUM OXYBATE\SODIUM OXYBATE
     Dosage: 2.25 GRAM AT BEDTIME AND REPEAT 2.5-4 HOURS FOR 7 DAYS, THEN 3 GRAM TWICE NIGHTLY FOR 7 DAYS, THEN 3.75 GRAM TWICE NIGHTLY FOR 7 DAYS, THEN 4.5 GRAM TWICE NIGHTLY.

REACTIONS (4)
  - Surgery [Unknown]
  - Allergy to animal [Unknown]
  - White blood cell count increased [Unknown]
  - Product dose omission issue [Unknown]

NARRATIVE: CASE EVENT DATE: 20250901
